FAERS Safety Report 9324913 (Version 1)
Quarter: 2013Q2

REPORT INFORMATION
  Report Type: Spontaneous
  Country: US (occurrence: US)
  Receive Date: 20130603
  Receipt Date: 20130603
  Transmission Date: 20140414
  Serious: No
  Sender: FDA-Public Use
  Company Number: US-BAYER-2013-066479

PATIENT
  Sex: 0

DRUGS (2)
  1. ALEVE CAPLET [Suspect]
     Indication: HEADACHE
     Dosage: 4 DF, UNK
     Route: 048
  2. CLARITAN [Concomitant]

REACTIONS (2)
  - Therapeutic response decreased [None]
  - Incorrect dose administered [None]
